FAERS Safety Report 7650955-7 (Version None)
Quarter: 2011Q3

REPORT INFORMATION
  Report Type: 
  Country: None (occurrence: None)
  Receive Date: 20110802
  Receipt Date: 20110719
  Transmission Date: 20111222
  Serious: Yes (Other)
  Sender: FDA-Public Use
  Company Number: US-ELI_LILLY_AND_COMPANY-US201007005376

PATIENT
  Sex: Female

DRUGS (11)
  1. FORTEO [Suspect]
     Dosage: 20 UG, DAILY (1/D)
     Route: 065
  2. FORTEO [Suspect]
     Dosage: 20 UG, QD
     Route: 065
  3. FORTEO [Suspect]
     Dosage: 20 UG, QD
     Route: 065
  4. TYLENOL/SCH/ [Concomitant]
  5. FORTEO [Suspect]
     Dosage: 20 UG, QD
     Route: 065
  6. FORTEO [Suspect]
     Dosage: 20 UG, DAILY (1/D)
     Route: 065
  7. LORAZEPAM [Concomitant]
  8. CRESTOR [Concomitant]
  9. FORTEO [Suspect]
     Indication: OSTEOPOROSIS
     Dosage: 20 UG, DAILY (1/D)
     Dates: start: 20100501
  10. LEXAPRO [Concomitant]
  11. TRAMEDO [Concomitant]

REACTIONS (11)
  - INTERVERTEBRAL DISC PROTRUSION [None]
  - DERMATITIS [None]
  - ARTHRITIS [None]
  - INFLAMMATION [None]
  - BACK PAIN [None]
  - PRURITUS [None]
  - PAIN IN EXTREMITY [None]
  - LACERATION [None]
  - BACK DISORDER [None]
  - ERYTHEMA [None]
  - LATEX ALLERGY [None]
